FAERS Safety Report 24905595 (Version 1)
Quarter: 2025Q1

REPORT INFORMATION
  Report Type: Report from Study
  Country: US (occurrence: US)
  Receive Date: 20250130
  Receipt Date: 20250130
  Transmission Date: 20250409
  Serious: No
  Sender: HRA PHARMA
  Company Number: US-ORG100014127-2024000080

PATIENT
  Age: 68 Year
  Sex: Female

DRUGS (9)
  1. METOPIRONE [Suspect]
     Active Substance: METYRAPONE
     Indication: Pituitary-dependent Cushing^s syndrome
     Dosage: 01 CAPSULE BY MOUTH WITH LUNCH AND 02 CAPSULE WITH DINNER
     Route: 048
     Dates: start: 20230930
  2. CALCIUM [Concomitant]
     Active Substance: CALCIUM
     Indication: Product used for unknown indication
  3. Carvedilol tab 3.125 mg [Concomitant]
     Indication: Product used for unknown indication
  4. Hydrochlorot Cap 12.5 mg [Concomitant]
     Indication: Product used for unknown indication
  5. Olmesa Medox Tab 5 mg [Concomitant]
     Indication: Product used for unknown indication
  6. Omeprazole cap 20 mg [Concomitant]
     Indication: Product used for unknown indication
  7. Spironolact Tab 50 mg [Concomitant]
     Indication: Product used for unknown indication
  8. Vitamin B 12 Tab 100mcg [Concomitant]
     Indication: Product used for unknown indication
  9. Vitamin D3 CAP 2000unit [Concomitant]
     Indication: Product used for unknown indication

REACTIONS (1)
  - Off label use [Unknown]

NARRATIVE: CASE EVENT DATE: 20230930
